FAERS Safety Report 18760733 (Version 1)
Quarter: 2021Q1

REPORT INFORMATION
  Report Type: Spontaneous
  Country: US (occurrence: US)
  Receive Date: 20210119
  Receipt Date: 20210119
  Transmission Date: 20210419
  Serious: No
  Sender: FDA-Public Use
  Company Number: US-PFIZER INC-2021027093

PATIENT
  Sex: Female

DRUGS (4)
  1. GABAPENTIN. [Suspect]
     Active Substance: GABAPENTIN
     Dosage: UNK
     Dates: start: 20210108
  2. DAYVIGO [Suspect]
     Active Substance: LEMBOREXANT
     Indication: INSOMNIA
     Dosage: 5 MG
     Route: 048
     Dates: start: 20201228, end: 20201229
  3. GABAPENTIN. [Suspect]
     Active Substance: GABAPENTIN
     Indication: RESTLESS LEGS SYNDROME
     Dosage: UNK
     Dates: start: 20201228
  4. DAYVIGO [Suspect]
     Active Substance: LEMBOREXANT
     Dosage: 10 MG
     Route: 048
     Dates: start: 20201230

REACTIONS (3)
  - Off label use [Unknown]
  - Energy increased [Recovered/Resolved]
  - Hypersomnia [Unknown]

NARRATIVE: CASE EVENT DATE: 20201228
